FAERS Safety Report 7288014-8 (Version None)
Quarter: 2011Q1

REPORT INFORMATION
  Report Type: 
  Country: None (occurrence: None)
  Receive Date: 20110211
  Receipt Date: 20110131
  Transmission Date: 20110831
  Serious: Yes (Hospitalization, Other)
  Sender: FDA-Public Use
  Company Number: PHFR2010GB04077

PATIENT
  Sex: Male

DRUGS (13)
  1. CLOZARIL [Suspect]
     Dosage: UNK
     Route: 048
     Dates: start: 20090224
  2. ATORVASTATIN [Concomitant]
     Indication: BUNDLE BRANCH BLOCK LEFT
  3. ACETYLSALICYLIC ACID [Concomitant]
     Indication: BUNDLE BRANCH BLOCK LEFT
  4. SIMVASTATIN [Concomitant]
     Dosage: 40 MG NOCTE, QD
  5. CALCICHEW D3 [Concomitant]
     Dosage: 1 TABLET, BID
  6. ACETYLSALICYLIC ACID [Concomitant]
     Indication: BLOOD CHOLESTEROL INCREASED
     Dosage: UNK DF, UNK
  7. OLANZAPINE [Concomitant]
     Dosage: 20 MG NOCTE, QD
  8. CLOZARIL [Suspect]
     Indication: SCHIZOAFFECTIVE DISORDER
     Dosage: UNK MG, UNK
     Route: 048
     Dates: start: 20090224
  9. LITHIUM [Suspect]
     Dosage: 400 MG NOCTE, QD
  10. VALPROATE SEMISODIUM [Concomitant]
     Dosage: 1000 MG, BID
     Route: 048
  11. DIAZEPAM [Concomitant]
     Dosage: 5 MG, BID
     Route: 048
  12. LITHIUM [Suspect]
     Indication: SCHIZOAFFECTIVE DISORDER
     Dosage: UNK DF, UNK
  13. ATORVASTATIN [Concomitant]
     Indication: BLOOD CHOLESTEROL INCREASED
     Dosage: UNK DF, UNK

REACTIONS (11)
  - PSYCHOTIC DISORDER [None]
  - DIFFERENTIAL WHITE BLOOD CELL COUNT ABNORMAL [None]
  - NEUTROPENIA [None]
  - SCHIZOPHRENIA [None]
  - BLOOD CHOLESTEROL INCREASED [None]
  - DELUSION [None]
  - ABNORMAL BEHAVIOUR [None]
  - BUNDLE BRANCH BLOCK LEFT [None]
  - THINKING ABNORMAL [None]
  - MENTAL IMPAIRMENT [None]
  - WHITE BLOOD CELL COUNT DECREASED [None]
